APPROVED DRUG PRODUCT: DIMENHYDRINATE
Active Ingredient: DIMENHYDRINATE
Strength: 12.5MG/4ML
Dosage Form/Route: LIQUID;ORAL
Application: A080715 | Product #001
Applicant: ALRA LABORATORIES INC
Approved: Approved Prior to Jan 1, 1982 | RLD: No | RS: No | Type: DISCN